FAERS Safety Report 6766358-3 (Version None)
Quarter: 2010Q2

REPORT INFORMATION
  Report Type: 
  Country: None (occurrence: None)
  Receive Date: 20100611
  Receipt Date: 20100531
  Transmission Date: 20101027
  Serious: Yes (Hospitalization)
  Sender: FDA-Public Use
  Company Number: PHHY2009JP36342

PATIENT
  Age: 34 Year
  Sex: Male

DRUGS (5)
  1. GLEEVEC [Suspect]
     Indication: CHRONIC MYELOID LEUKAEMIA
     Dosage: 400 MG/DAY
     Route: 048
     Dates: start: 20090811, end: 20090819
  2. GLEEVEC [Suspect]
     Dosage: 100 MG/DAY
     Route: 048
     Dates: start: 20090901, end: 20091001
  3. GLEEVEC [Suspect]
     Dosage: 100 MG/DAY
     Route: 048
     Dates: start: 20091008
  4. ALLELOCK [Concomitant]
     Dosage: UNK
     Route: 048
     Dates: start: 20090820
  5. FULMETA [Concomitant]
     Dosage: UNK
     Route: 003
     Dates: start: 20090820

REACTIONS (3)
  - LIVER DISORDER [None]
  - RASH [None]
  - RASH PAPULAR [None]
